FAERS Safety Report 5880014-5 (Version None)
Quarter: 2008Q3

REPORT INFORMATION
  Report Type: 
  Country: None (occurrence: None)
  Receive Date: 20080912
  Receipt Date: 20080909
  Transmission Date: 20090109
  Serious: Yes (Death)
  Sender: FDA-Public Use
  Company Number: FR-SANOFI-SYNTHELABO-F01200801440

PATIENT
  Sex: Male
  Weight: 91 kg

DRUGS (2)
  1. DOCETAXEL [Suspect]
     Route: 042
  2. OXALIPLATIN [Suspect]
     Indication: GASTRIC CANCER
     Route: 042

REACTIONS (1)
  - GENERALISED OEDEMA [None]
